FAERS Safety Report 23322745 (Version 1)
Quarter: 2023Q4

REPORT INFORMATION
  Report Type: Spontaneous
  Country: US (occurrence: US)
  Receive Date: 20231220
  Receipt Date: 20231220
  Transmission Date: 20240110
  Serious: No
  Sender: FDA-Public Use
  Company Number: US-BEH-2023166570

PATIENT
  Age: 24 Year
  Sex: Female

DRUGS (1)
  1. HIZENTRA [Suspect]
     Active Substance: HUMAN IMMUNOGLOBULIN G
     Indication: Demyelination
     Dosage: 17 GRAM, QW
     Route: 058
     Dates: start: 20231210

REACTIONS (3)
  - Blood immunoglobulin G increased [Unknown]
  - No adverse event [Unknown]
  - Off label use [Unknown]
